FAERS Safety Report 6197039-5 (Version None)
Quarter: 2009Q2

REPORT INFORMATION
  Report Type: 
  Country: None (occurrence: None)
  Receive Date: 20090518
  Receipt Date: 20090518
  Transmission Date: 20091009
  Serious: Yes (Hospitalization)
  Sender: FDA-Public Use
  Company Number: None

PATIENT
  Age: 56 Year
  Sex: Male
  Weight: 57.6 kg

DRUGS (1)
  1. NAPROXEN [Suspect]
     Dosage: MG BID PO
     Route: 048
     Dates: start: 20090407, end: 20090428

REACTIONS (5)
  - ALCOHOL USE [None]
  - GASTRIC HAEMORRHAGE [None]
  - HAEMATOCRIT DECREASED [None]
  - HAEMOGLOBIN DECREASED [None]
  - MELAENA [None]
